FAERS Safety Report 7983735-3 (Version None)
Quarter: 2011Q4

REPORT INFORMATION
  Report Type: 
  Country: None (occurrence: None)
  Receive Date: 20111215
  Receipt Date: 20111214
  Transmission Date: 20120403
  Serious: Yes (Hospitalization)
  Sender: FDA-Public Use
  Company Number: DE-ROCHE-1016484

PATIENT
  Sex: Female
  Weight: 56 kg

DRUGS (10)
  1. MYCOPHENOLATE MOFETIL (CELLCEPT) [Suspect]
     Indication: RENAL TRANSPLANT
     Route: 048
     Dates: start: 20110103
  2. TACROLIMUS [Suspect]
     Route: 048
  3. BASILIXIMAB [Suspect]
     Indication: RENAL TRANSPLANT
     Route: 042
     Dates: start: 20110103, end: 20110927
  4. PREDNISOLONE [Suspect]
     Route: 048
  5. PREDNISOLONE [Suspect]
     Route: 048
     Dates: start: 20110414
  6. MYCOPHENOLATE MOFETIL (CELLCEPT) [Suspect]
  7. BASILIXIMAB [Suspect]
     Route: 042
     Dates: start: 20111105
  8. PREDNISOLONE [Suspect]
     Indication: RENAL TRANSPLANT
     Route: 048
     Dates: start: 20110103
  9. CERTICAN [Concomitant]
     Dates: end: 20111031
  10. TACROLIMUS [Suspect]
     Indication: RENAL TRANSPLANT
     Route: 048
     Dates: start: 20110103

REACTIONS (2)
  - KIDNEY TRANSPLANT REJECTION [None]
  - FEBRILE INFECTION [None]
